FAERS Safety Report 13284568 (Version 1)
Quarter: 2017Q1

REPORT INFORMATION
  Report Type: Report from Study
  Country: TR (occurrence: TR)
  Receive Date: 20170301
  Receipt Date: 20170301
  Transmission Date: 20170428
  Serious: Yes (Other)
  Sender: FDA-Public Use
  Company Number: TR-KADMON PHARMACEUTICALS, LLC-KAD201702-000459

PATIENT
  Age: 26 Year
  Sex: Male

DRUGS (2)
  1. RIBAVIRIN. [Suspect]
     Active Substance: RIBAVIRIN
     Indication: PROPHYLAXIS
  2. RIBAVIRIN. [Suspect]
     Active Substance: RIBAVIRIN
     Indication: CONGO-CRIMEAN HAEMORRHAGIC FEVER

REACTIONS (3)
  - Hepatitis [Recovered/Resolved]
  - Enteritis [Recovered/Resolved]
  - Product use issue [Unknown]
